FAERS Safety Report 5630522-7 (Version None)
Quarter: 2008Q1

REPORT INFORMATION
  Report Type: 
  Country: None (occurrence: None)
  Receive Date: 20080219
  Receipt Date: 20080208
  Transmission Date: 20080703
  Serious: Yes (Other)
  Sender: FDA-Public Use
  Company Number: US-AMGEN-STX264723

PATIENT
  Sex: Male

DRUGS (1)
  1. ENBREL [Suspect]
     Indication: PSORIASIS
     Route: 058
     Dates: start: 20070621

REACTIONS (5)
  - DEPRESSION [None]
  - FATIGUE [None]
  - HALLUCINATION [None]
  - PAIN [None]
  - PSORIASIS [None]
